FAERS Safety Report 5772072-3 (Version None)
Quarter: 2008Q2

REPORT INFORMATION
  Report Type: 
  Country: None (occurrence: None)
  Receive Date: 20080612
  Receipt Date: 20080612
  Transmission Date: 20081010
  Serious: Yes (Hospitalization)
  Sender: FDA-Public Use
  Company Number: None

PATIENT
  Age: 78 Year
  Sex: Male
  Weight: 108.9 kg

DRUGS (2)
  1. CAPECITABINE [Suspect]
     Indication: COLON CANCER
     Dosage: 1000 MG BID PO
     Route: 048
     Dates: start: 20080126, end: 20080211
  2. PHENYTOIN [Suspect]
     Indication: CONVULSION
     Dosage: BID PO
     Route: 048
     Dates: start: 19960430

REACTIONS (8)
  - ATAXIA [None]
  - CONFUSIONAL STATE [None]
  - DIPLOPIA [None]
  - DRUG INTERACTION [None]
  - DRUG TOXICITY [None]
  - FALL [None]
  - NYSTAGMUS [None]
  - VISION BLURRED [None]
